FAERS Safety Report 4295342-7 (Version None)
Quarter: 2004Q1

REPORT INFORMATION
  Report Type: 
  Country: None (occurrence: None)
  Receive Date: 20040216
  Receipt Date: 20030618
  Transmission Date: 20041129
  Serious: No
  Sender: FDA-Public Use
  Company Number: US-GLAXOSMITHKLINE-A0413228A

PATIENT
  Age: 60 Year
  Sex: Female

DRUGS (2)
  1. LAMICTAL [Suspect]
     Indication: HEADACHE
     Dosage: 50MG PER DAY
     Route: 048
     Dates: start: 20030401, end: 20030612
  2. ESTROGEN [Concomitant]

REACTIONS (4)
  - DISTURBANCE IN ATTENTION [None]
  - FLUSHING [None]
  - HEADACHE [None]
  - VISION BLURRED [None]
